FAERS Safety Report 12870496 (Version 3)
Quarter: 2018Q1

REPORT INFORMATION
  Report Type: Report from Study
  Country: US (occurrence: US)
  Receive Date: 20161020
  Receipt Date: 20180105
  Transmission Date: 20180508
  Serious: No
  Sender: FDA-Public Use
  Company Number: US-AMGEN-USASL2016131652

PATIENT
  Age: 73 Year
  Sex: Female

DRUGS (2)
  1. REPATHA [Suspect]
     Active Substance: EVOLOCUMAB
     Indication: DRUG INTOLERANCE
     Dosage: UNK
     Route: 065
     Dates: start: 201607
  2. REPATHA [Suspect]
     Active Substance: EVOLOCUMAB
     Indication: STENT PLACEMENT

REACTIONS (2)
  - Drug effect incomplete [Unknown]
  - Off label use [Unknown]
